FAERS Safety Report 11068720 (Version 3)
Quarter: 2015Q3

REPORT INFORMATION
  Report Type: Spontaneous
  Country: US (occurrence: US)
  Receive Date: 20150427
  Receipt Date: 20150721
  Transmission Date: 20151125
  Serious: Yes (Other)
  Sender: FDA-Public Use
  Company Number: US-ACORDA-ACO_110987_2015

PATIENT
  Age: 51 Year
  Sex: Male
  Weight: 81.63 kg

DRUGS (10)
  1. CLONAZEPAM. [Concomitant]
     Active Substance: CLONAZEPAM
     Indication: ANXIETY
     Dosage: 0.5 MG, PRN
     Route: 065
  2. BACLOFEN. [Concomitant]
     Active Substance: BACLOFEN
     Indication: PRODUCT USED FOR UNKNOWN INDICATION
     Dosage: 10 MG, BID
     Route: 065
  3. AMPYRA [Suspect]
     Active Substance: DALFAMPRIDINE
     Indication: PRODUCT USED FOR UNKNOWN INDICATION
     Dosage: 10 MG, BID
     Route: 048
     Dates: start: 20120614, end: 20120829
  4. AMBIEN [Concomitant]
     Active Substance: ZOLPIDEM TARTRATE
     Indication: PRODUCT USED FOR UNKNOWN INDICATION
     Route: 065
  5. DETROL [Concomitant]
     Active Substance: TOLTERODINE TARTRATE
     Indication: PRODUCT USED FOR UNKNOWN INDICATION
     Route: 065
  6. DULCOLAX [Concomitant]
     Active Substance: BISACODYL OR DOCUSATE SODIUM
     Indication: PRODUCT USED FOR UNKNOWN INDICATION
     Route: 065
  7. TECFIDERA [Concomitant]
     Active Substance: DIMETHYL FUMARATE
     Indication: PRODUCT USED FOR UNKNOWN INDICATION
     Dosage: UNK
     Route: 065
     Dates: start: 201307
  8. OXYBUTYNIN [Concomitant]
     Active Substance: OXYBUTYNIN
     Indication: PRODUCT USED FOR UNKNOWN INDICATION
     Route: 065
  9. LEXAPRO [Concomitant]
     Active Substance: ESCITALOPRAM OXALATE
     Indication: PRODUCT USED FOR UNKNOWN INDICATION
     Route: 065
  10. VICODIN [Concomitant]
     Active Substance: ACETAMINOPHEN\HYDROCODONE BITARTRATE
     Indication: PRODUCT USED FOR UNKNOWN INDICATION
     Route: 065

REACTIONS (21)
  - Faecal incontinence [Unknown]
  - Sleep disorder [Unknown]
  - Inappropriate affect [Unknown]
  - Generalised tonic-clonic seizure [Recovered/Resolved]
  - Impulsive behaviour [Unknown]
  - Confusional state [Unknown]
  - Fall [Unknown]
  - Nervous system disorder [Unknown]
  - Back pain [Unknown]
  - Drug ineffective [Unknown]
  - Cognitive disorder [Unknown]
  - Intention tremor [Unknown]
  - Micturition urgency [Unknown]
  - Urge incontinence [Unknown]
  - Tremor [Unknown]
  - Fine motor skill dysfunction [Unknown]
  - Sensory loss [Unknown]
  - Urinary retention [Unknown]
  - Gait disturbance [Unknown]
  - Dysgraphia [Unknown]
  - Brain stem syndrome [Unknown]

NARRATIVE: CASE EVENT DATE: 20120829
